FAERS Safety Report 10784830 (Version 1)
Quarter: 2015Q1

REPORT INFORMATION
  Report Type: Spontaneous
  Country: US (occurrence: US)
  Receive Date: 20150211
  Receipt Date: 20150211
  Transmission Date: 20150721
  Serious: No
  Sender: FDA-Public Use
  Company Number: US-GLAXOSMITHKLINE-A1070108A

PATIENT

DRUGS (9)
  1. AMBIEN [Concomitant]
     Active Substance: ZOLPIDEM TARTRATE
  2. LAMICTAL [Suspect]
     Active Substance: LAMOTRIGINE
     Indication: SEIZURE
     Route: 065
     Dates: start: 20100326
  3. KEPPRA [Concomitant]
     Active Substance: LEVETIRACETAM
     Indication: SEIZURE
     Dosage: 1000 MG IN THE AM AND 1250 MG FOR A TOTAL DAILY DOSE OF 2250 MG
     Route: 065
  4. XANAX [Concomitant]
     Active Substance: ALPRAZOLAM
  5. TOPAMAX [Concomitant]
     Active Substance: TOPIRAMATE
     Indication: SEIZURE
     Route: 065
  6. VIMPAT TABLET [Concomitant]
     Indication: SEIZURE
     Route: 065
  7. METOPROLOL [Concomitant]
     Active Substance: METOPROLOL
  8. SUPPLEMENT [Concomitant]
     Active Substance: UNSPECIFIED INGREDIENT
  9. OLUX [Concomitant]
     Active Substance: CLOBETASOL PROPIONATE
     Route: 065
     Dates: start: 20100921

REACTIONS (5)
  - Depression [Unknown]
  - Presyncope [Unknown]
  - Dizziness [Unknown]
  - Cognitive disorder [Unknown]
  - Paraesthesia [Recovering/Resolving]
